FAERS Safety Report 19774239 (Version 1)
Quarter: 2021Q3

REPORT INFORMATION
  Report Type: Spontaneous
  Country: FR (occurrence: FR)
  Receive Date: 20210901
  Receipt Date: 20210901
  Transmission Date: 20211014
  Serious: Yes (Death)
  Sender: FDA-Public Use
  Company Number: FR-MYLANLABS-2021M1057657

PATIENT
  Age: 76 Year
  Sex: Male

DRUGS (3)
  1. MODOPAR [Suspect]
     Active Substance: BENSERAZIDE HYDROCHLORIDE\LEVODOPA
     Indication: PARKINSONISM
     Dosage: UNK
     Route: 048
     Dates: end: 20210209
  2. GALANTAMINE. [Suspect]
     Active Substance: GALANTAMINE
     Indication: DEMENTIA ALZHEIMER^S TYPE
     Dosage: UNK
     Route: 048
     Dates: end: 20210209
  3. COMIRNATY [Suspect]
     Active Substance: TOZINAMERAN
     Indication: COVID-19 IMMUNISATION
     Dosage: 1 DOSAGE FORM
     Route: 030
     Dates: start: 20210123, end: 20210123

REACTIONS (4)
  - Circulatory collapse [Fatal]
  - Asthenia [Fatal]
  - Dehydration [Fatal]
  - Decreased appetite [Fatal]

NARRATIVE: CASE EVENT DATE: 20210123
